FAERS Safety Report 6079571-8 (Version None)
Quarter: 2009Q1

REPORT INFORMATION
  Report Type: 
  Country: None (occurrence: None)
  Receive Date: 20090217
  Receipt Date: 20090211
  Transmission Date: 20090719
  Serious: No
  Sender: FDA-Public Use
  Company Number: US-JNJFOC-20090203251

PATIENT
  Sex: Male
  Weight: 87.54 kg

DRUGS (7)
  1. FENTANYL TRANSDERMAL SYSTEM [Suspect]
     Indication: BONE NEOPLASM MALIGNANT
     Route: 062
  2. FENTANYL TRANSDERMAL SYSTEM [Suspect]
     Indication: PROSTATE CANCER
     Route: 062
  3. FENTANYL TRANSDERMAL SYSTEM [Suspect]
     Indication: BONE NEOPLASM MALIGNANT
     Route: 062
  4. FENTANYL TRANSDERMAL SYSTEM [Suspect]
     Indication: PROSTATE CANCER
     Route: 062
  5. UNSPECIFIED HORMONE THERAPY [Suspect]
     Indication: BONE NEOPLASM MALIGNANT
     Route: 065
  6. UNSPECIFIED HORMONE THERAPY [Suspect]
     Indication: PROSTATE CANCER
     Route: 065
  7. UNSPECIFIED MEDICATIONS [Concomitant]
     Route: 065

REACTIONS (4)
  - HOT FLUSH [None]
  - HYPERHIDROSIS [None]
  - TREMOR [None]
  - WRONG TECHNIQUE IN DRUG USAGE PROCESS [None]
